FAERS Safety Report 8587038-8 (Version None)
Quarter: 2012Q3

REPORT INFORMATION
  Report Type: 
  Country: None (occurrence: None)
  Receive Date: 20120810
  Receipt Date: 20120803
  Transmission Date: 20120928
  Serious: Yes (Other)
  Sender: FDA-Public Use
  Company Number: US-TEVA-352707USA

PATIENT
  Age: 29 Year
  Sex: Male

DRUGS (2)
  1. NUVIGIL [Suspect]
     Indication: CIRCADIAN RHYTHM SLEEP DISORDER
     Route: 048
  2. TEKTURNA [Concomitant]
     Indication: HYPERTENSION

REACTIONS (1)
  - RASH [None]
